FAERS Safety Report 9133470 (Version 1)
Quarter: 2013Q1

REPORT INFORMATION
  Report Type: Spontaneous
  Country: US (occurrence: US)
  Receive Date: 20130123
  Receipt Date: 20130123
  Transmission Date: 20140127
  Serious: Yes (Other)
  Sender: FDA-Public Use
  Company Number: US-RB-048731-13

PATIENT
  Age: 77 Year
  Sex: Female

DRUGS (1)
  1. DELSYM [Suspect]
     Indication: RESPIRATORY TRACT CONGESTION
     Dosage: 1 DOSE
     Route: 048
     Dates: start: 20130110

REACTIONS (10)
  - Amnesia [Recovered/Resolved]
  - Palpitations [Recovered/Resolved]
  - Gait disturbance [Recovered/Resolved]
  - Retching [Recovered/Resolved]
  - Asthenia [Recovered/Resolved]
  - Abdominal pain upper [Recovered/Resolved]
  - Headache [Recovered/Resolved]
  - Dizziness [Recovered/Resolved]
  - Nausea [Recovered/Resolved]
  - Retching [None]
